FAERS Safety Report 8802271 (Version 2)
Quarter: 2012Q4

REPORT INFORMATION
  Report Type: 
  Country: US (occurrence: US)
  Receive Date: 20120921
  Receipt Date: 20121018
  Transmission Date: 20130627
  Serious: Yes (Death)
  Sender: FDA-Public Use
  Company Number: US-ROCHE-1126854

PATIENT
  Sex: Female
  Weight: 76.73 kg

DRUGS (12)
  1. AVASTIN [Suspect]
     Indication: BRAIN NEOPLASM MALIGNANT
     Route: 065
     Dates: start: 200709, end: 200809
  2. AVASTIN [Suspect]
     Indication: BRAIN NEOPLASM MALIGNANT
  3. CARBOPLATIN [Concomitant]
     Indication: BRAIN NEOPLASM MALIGNANT
     Route: 065
  4. CAMPTOSAR [Concomitant]
     Indication: BRAIN NEOPLASM MALIGNANT
     Route: 065
     Dates: start: 200709, end: 200809
  5. TEMODAR [Concomitant]
     Indication: PRODUCT USED FOR UNKNOWN INDICATION
     Route: 065
  6. FOLIC ACID [Concomitant]
  7. KEPPRA [Concomitant]
     Route: 065
  8. VITAMIN D [Concomitant]
     Dosage: 50000 units every two weeks
     Route: 065
  9. HYDROCORTISONE [Concomitant]
     Route: 065
  10. FOSAMAX [Concomitant]
     Route: 065
  11. CALCIUM [Concomitant]
     Dosage: per day
     Route: 065
  12. POTASSIUM [Concomitant]
     Dosage: per day
     Route: 065

REACTIONS (8)
  - Glioblastoma multiforme [Fatal]
  - Oropharyngeal pain [Unknown]
  - Sinus headache [Unknown]
  - Infection [Unknown]
  - Muscular weakness [Unknown]
  - Confusional state [Unknown]
  - Diplopia [Unknown]
  - Dysphagia [Unknown]
